FAERS Safety Report 8050215-9 (Version None)
Quarter: 2012Q1

REPORT INFORMATION
  Report Type: 
  Country: None (occurrence: None)
  Receive Date: 20120117
  Receipt Date: 20120110
  Transmission Date: 20120608
  Serious: Yes (Other)
  Sender: FDA-Public Use
  Company Number: PHHY2012US002066

PATIENT
  Age: 48 Year
  Sex: Male

DRUGS (1)
  1. TACROLIMUS [Suspect]
     Dosage: UNK UKN, UNK

REACTIONS (7)
  - NAUSEA [None]
  - VOMITING [None]
  - BILIARY DILATATION [None]
  - ABDOMINAL TENDERNESS [None]
  - BILE DUCT STONE [None]
  - JAUNDICE [None]
  - ABDOMINAL PAIN UPPER [None]
